FAERS Safety Report 5864166-9 (Version None)
Quarter: 2008Q3

REPORT INFORMATION
  Report Type: 
  Country: None (occurrence: None)
  Receive Date: 20080829
  Receipt Date: 20080821
  Transmission Date: 20090109
  Serious: Yes (Death)
  Sender: FDA-Public Use
  Company Number: CH-JNJFOC-20080805895

PATIENT
  Age: 66 Year
  Sex: Male
  Weight: 98 kg

DRUGS (12)
  1. ZALDIAR [Suspect]
     Indication: DRUG USE FOR UNKNOWN INDICATION
     Dosage: FILM COATED TABLET
     Route: 048
  2. ASPIRIN [Suspect]
     Indication: SECONDARY HYPERTENSION
     Route: 048
  3. VOLTAREN [Suspect]
     Indication: BACK PAIN
     Route: 048
  4. ADALAT [Concomitant]
     Route: 065
  5. COVERSUM [Concomitant]
     Route: 065
  6. LASIX [Concomitant]
     Route: 065
  7. LORASIFAR [Concomitant]
     Route: 065
  8. SORTIS [Concomitant]
     Route: 065
  9. LEVOFLOXACIN [Concomitant]
     Route: 065
  10. KLACID [Concomitant]
     Route: 065
  11. SOLU-MEDROL [Concomitant]
     Route: 065
  12. MERONEM [Concomitant]
     Route: 065

REACTIONS (6)
  - INTESTINAL ULCER [None]
  - MULTI-ORGAN FAILURE [None]
  - PNEUMONIA [None]
  - RECTAL HAEMORRHAGE [None]
  - RENAL FAILURE [None]
  - SEPTIC SHOCK [None]
